FAERS Safety Report 19776856 (Version 1)
Quarter: 2021Q3

REPORT INFORMATION
  Report Type: Spontaneous
  Country: FR (occurrence: FR)
  Receive Date: 20210902
  Receipt Date: 20210902
  Transmission Date: 20211014
  Serious: Yes (Life-Threatening)
  Sender: FDA-Public Use
  Company Number: FR-ORGANON-O2108FRA001816

PATIENT
  Age: 85 Year
  Sex: Female

DRUGS (1)
  1. DIPROSTENE [Suspect]
     Active Substance: BETAMETHASONE DIPROPIONATE\BETAMETHASONE SODIUM PHOSPHATE
     Indication: COMPLEX REGIONAL PAIN SYNDROME
     Dosage: 1 DOSAGE FORM, ONCE (TOTAL)
     Route: 014
     Dates: start: 20210811, end: 20210811

REACTIONS (2)
  - Hypersensitivity [Recovered/Resolved]
  - Respiratory distress [Recovered/Resolved]

NARRATIVE: CASE EVENT DATE: 20210811
